FAERS Safety Report 5739745-X (Version None)
Quarter: 2008Q2

REPORT INFORMATION
  Report Type: 
  Country: None (occurrence: None)
  Receive Date: 20080512
  Receipt Date: 20080512
  Transmission Date: 20081010
  Serious: Yes (Hospitalization)
  Sender: FDA-Public Use
  Company Number: None

PATIENT
  Age: 57 Year
  Sex: Male

DRUGS (3)
  1. WARFARIN SODIUM [Suspect]
     Indication: DEEP VEIN THROMBOSIS
     Dosage: 15MG DAILY PO
     Route: 048
  2. ENOXAPARIN SODIUM [Suspect]
     Indication: DEEP VEIN THROMBOSIS
  3. ENOXAPARIN SODIUM [Suspect]
     Indication: THERAPY CESSATION

REACTIONS (7)
  - ANAEMIA [None]
  - BLISTER [None]
  - CELLULITIS [None]
  - HERNIA REPAIR [None]
  - INTERNATIONAL NORMALISED RATIO INCREASED [None]
  - SKIN NECROSIS [None]
  - THROMBOSIS [None]
